FAERS Safety Report 6161025-1 (Version None)
Quarter: 2009Q2

REPORT INFORMATION
  Report Type: 
  Country: None (occurrence: None)
  Receive Date: 20090420
  Receipt Date: 20090408
  Transmission Date: 20091009
  Serious: Yes (Other)
  Sender: FDA-Public Use
  Company Number: US-PFIZER INC-2009196057

PATIENT
  Sex: Female

DRUGS (8)
  1. PROVERA [Suspect]
     Indication: HORMONE REPLACEMENT THERAPY
     Dosage: 2.5 MG, UNK
     Dates: start: 19910426, end: 19970218
  2. PROVERA [Suspect]
     Dosage: 2.5 MG, UNK
     Dates: start: 19910426, end: 19970218
  3. PREMARIN [Suspect]
     Indication: HORMONE REPLACEMENT THERAPY
     Dosage: 0.625 MG, UNK
     Dates: start: 19910426, end: 19970218
  4. PREMPRO [Suspect]
     Indication: HORMONE REPLACEMENT THERAPY
     Dosage: 0.625-2.5
     Dates: start: 19970218, end: 19990101
  5. VASOTEC [Concomitant]
     Indication: HYPERTENSION
     Dosage: UNK
     Dates: start: 19910426
  6. ATENOLOL [Concomitant]
     Indication: PALPITATIONS
     Dosage: UNK
  7. SYNTHROID [Concomitant]
     Indication: HYPOTHYROIDISM
     Dosage: UNK
  8. ACETYLSALICYLIC ACID [Concomitant]
     Indication: ARTHRALGIA
     Dosage: UNK
     Dates: end: 20050728

REACTIONS (1)
  - BREAST CANCER [None]
